FAERS Safety Report 19802250 (Version 1)
Quarter: 2021Q3

REPORT INFORMATION
  Report Type: Spontaneous
  Country: US (occurrence: US)
  Receive Date: 20210908
  Receipt Date: 20210908
  Transmission Date: 20211014
  Serious: Yes (Hospitalization)
  Sender: FDA-Public Use
  Company Number: US-CELGENEUS-USA-20210900381

PATIENT
  Sex: Male
  Weight: 86.26 kg

DRUGS (1)
  1. REVLIMID [Suspect]
     Active Substance: LENALIDOMIDE
     Indication: PLASMA CELL MYELOMA
     Dosage: 15 MILLIGRAM
     Route: 048
     Dates: start: 202108

REACTIONS (8)
  - Bone disorder [Unknown]
  - Rash pruritic [Unknown]
  - Spinal fracture [Unknown]
  - Insomnia [Unknown]
  - Rash erythematous [Unknown]
  - Bone lesion [Unknown]
  - Skin exfoliation [Unknown]
  - Abdominal pain [Unknown]
